FAERS Safety Report 9528217 (Version 4)
Quarter: 2013Q4

REPORT INFORMATION
  Report Type: Report from Study
  Country: VE (occurrence: VE)
  Receive Date: 20130917
  Receipt Date: 20131127
  Transmission Date: 20140711
  Serious: Yes (Hospitalization)
  Sender: FDA-Public Use
  Company Number: PHHY2013VE101878

PATIENT
  Age: 51 Year
  Sex: Female

DRUGS (4)
  1. SANDOSTATIN LAR [Suspect]
     Indication: ACROMEGALY
     Dosage: 20 MG, MONTHLY
     Route: 030
     Dates: start: 201304, end: 201308
  2. EUTHYROX [Concomitant]
     Indication: HYPOTHYROIDISM
     Dosage: UNK UKN, UNK
     Route: 048
  3. MODURETIC [Concomitant]
     Indication: HYPERTENSION
     Dosage: UNK UKN, UNK
     Route: 048
     Dates: end: 201308
  4. COZAAR [Concomitant]
     Indication: HYPERTENSION
     Dosage: UNK UKN, UNK
     Route: 048
     Dates: start: 201308

REACTIONS (4)
  - Tumour haemorrhage [Recovered/Resolved]
  - Abasia [Recovered/Resolved]
  - Decreased appetite [Recovered/Resolved]
  - Headache [Recovered/Resolved]
